FAERS Safety Report 8369725-X (Version None)
Quarter: 2012Q2

REPORT INFORMATION
  Report Type: 
  Country: None (occurrence: None)
  Receive Date: 20120518
  Receipt Date: 20120507
  Transmission Date: 20120825
  Serious: Yes (Disabling)
  Sender: FDA-Public Use
  Company Number: IL-TEVA-337018ISR

PATIENT
  Age: 30 Year
  Sex: Male

DRUGS (5)
  1. DOXORUBICIN HCL [Suspect]
     Indication: HODGKIN'S DISEASE
     Dosage: 25 MG/M2
     Route: 065
  2. DACARBAZINE [Suspect]
     Indication: HODGKIN'S DISEASE
     Dosage: 375 MG/M2
     Route: 065
  3. DEXAMETHASONE [Suspect]
     Indication: HODGKIN'S DISEASE
     Dosage: 20MG
     Route: 065
  4. VINBLASTINE SULFATE [Suspect]
     Indication: HODGKIN'S DISEASE
     Dosage: 6 G/M2
     Route: 065
  5. BLEOMYCIN SULFATE [Suspect]
     Indication: HODGKIN'S DISEASE
     Dosage: 10 MG/M2
     Route: 065

REACTIONS (2)
  - RESPIRATORY DISORDER [None]
  - PULMONARY TOXICITY [None]
